FAERS Safety Report 26179223 (Version 1)
Quarter: 2025Q4

REPORT INFORMATION
  Report Type: Spontaneous
  Country: US (occurrence: None)
  Receive Date: 20251218
  Receipt Date: 20251218
  Transmission Date: 20260117
  Serious: Yes (Hospitalization)
  Sender: FDA-CTU
  Company Number: None

PATIENT
  Sex: Male

DRUGS (2)
  1. VYNDAMAX [Suspect]
     Active Substance: TAFAMIDIS
     Indication: Acquired ATTR amyloidosis
     Dosage: 61 MG DAILY ORAL
     Route: 048
     Dates: start: 20250130
  2. VYNDAMAX [Suspect]
     Active Substance: TAFAMIDIS
     Indication: Left ventricular failure

REACTIONS (1)
  - Transient ischaemic attack [None]
